FAERS Safety Report 9441329 (Version 1)
Quarter: 2013Q3

REPORT INFORMATION
  Report Type: Spontaneous
  Country: US (occurrence: US)
  Receive Date: 20130805
  Receipt Date: 20130805
  Transmission Date: 20140515
  Serious: Yes (Death, Other)
  Sender: FDA-Public Use
  Company Number: US-CELGENEUS-163-21880-13054921

PATIENT
  Age: 86 Year
  Sex: Female
  Weight: 90.8 kg

DRUGS (18)
  1. REVLIMID [Suspect]
     Indication: MYELODYSPLASTIC SYNDROME
     Dosage: 10 MILLIGRAM
     Route: 048
     Dates: start: 20100914
  2. REVLIMID [Suspect]
     Dosage: 5 MILLIGRAM
     Route: 048
     Dates: start: 201010
  3. REVLIMID [Suspect]
     Dosage: 5 MILLIGRAM
     Route: 048
     Dates: start: 201207
  4. REVLIMID [Suspect]
     Dosage: 10 MILLIGRAM
     Route: 048
     Dates: start: 201209
  5. HUMULIN [Concomitant]
     Indication: DIABETES MELLITUS
     Dosage: 18 UNITS
     Route: 058
  6. LOTREL [Concomitant]
     Indication: PRODUCT USED FOR UNKNOWN INDICATION
     Dosage: 5MG / 20MG
     Route: 065
  7. FOSAMAX [Concomitant]
     Indication: OSTEOPOROSIS
     Route: 048
  8. VITAMIN B12 [Concomitant]
     Indication: VITAMIN B12 DEFICIENCY
     Dosage: 100 MICROGRAM
     Route: 048
  9. VITAMIN B6 [Concomitant]
     Indication: VITAMIN B6 DEFICIENCY
     Dosage: 100 MILLIGRAM
     Route: 048
  10. NORVASC [Concomitant]
     Indication: HYPERTENSION
     Dosage: 5 MILLIGRAM
     Route: 048
  11. OSCAL 500 + D [Concomitant]
     Indication: HYPOCALCAEMIA
     Dosage: 1000 MILLIGRAM
     Route: 048
  12. SLOW FE [Concomitant]
     Indication: IRON DEFICIENCY
     Dosage: 284 MILLIGRAM
     Route: 048
  13. VERSED [Concomitant]
     Indication: PRODUCT USED FOR UNKNOWN INDICATION
     Dates: start: 20130211
  14. FENTANYL [Concomitant]
     Indication: PRODUCT USED FOR UNKNOWN INDICATION
     Dates: start: 20130211
  15. LIDOCAINE [Concomitant]
     Indication: PRODUCT USED FOR UNKNOWN INDICATION
     Dates: start: 20130211
  16. BYSTOLIC [Concomitant]
     Indication: HYPERTENSION
     Dosage: 5 MILLIGRAM
     Route: 048
  17. NORCO [Concomitant]
     Indication: PAIN
     Dosage: 5MG/325MG
     Route: 048
  18. ARANESP [Concomitant]
     Indication: RED BLOOD CELL COUNT DECREASED
     Dosage: 28.5714 MICROGRAM
     Route: 058

REACTIONS (1)
  - Acute myeloid leukaemia [Fatal]
